FAERS Safety Report 18728936 (Version 1)
Quarter: 2021Q1

REPORT INFORMATION
  Report Type: Report from Study
  Country: US (occurrence: US)
  Receive Date: 20210112
  Receipt Date: 20210112
  Transmission Date: 20210419
  Serious: Yes (Hospitalization, Other)
  Sender: FDA-Public Use
  Company Number: US-GILEAD-2021-0512312

PATIENT
  Sex: Female

DRUGS (29)
  1. HUMALOG [Concomitant]
     Active Substance: INSULIN LISPRO
     Dosage: HUMALOG 100/ML CARTRIDGE
  2. LEUCOVORIN [FOLINIC ACID] [Concomitant]
     Active Substance: LEUCOVORIN
     Dosage: LEUCOVORIN CALCIUM 10 MG TABLET
  3. OMEPRAZOLE. [Concomitant]
     Active Substance: OMEPRAZOLE
     Dosage: OMEPRAZOLE 10 MG CAPSULE DR
  4. AZTREONAM LYSINE [Suspect]
     Active Substance: AZTREONAM LYSINE
     Indication: BRONCHIECTASIS
     Dosage: 75 MG, TID; 28 DAYS ON AND 28 DAYS OFF
     Route: 055
  5. NORTRIPTYLINE HYDROCHLORIDE. [Concomitant]
     Active Substance: NORTRIPTYLINE HYDROCHLORIDE
     Dosage: NORTRIPTYLINE HCL 10 MG CAPSULE
  6. DULOXETINE HYDROCHLORIDE. [Concomitant]
     Active Substance: DULOXETINE HYDROCHLORIDE
     Dosage: DULOXETINE HCL 20 MG CAPSULE DR
  7. XYZAL [Concomitant]
     Active Substance: LEVOCETIRIZINE DIHYDROCHLORIDE
     Dosage: XYZAL 5 MG TABLET
  8. CARNITOR [Concomitant]
     Active Substance: LEVOCARNITINE
     Dosage: CARNITOR 330 MG TABLET
  9. QUETIAPINE FUMARATE. [Concomitant]
     Active Substance: QUETIAPINE FUMARATE
     Dosage: QUETIAPINE FUMARATE 100 MG TABLET
  10. NOVOLIN R [Concomitant]
     Active Substance: INSULIN HUMAN
     Dosage: NOVOLIN R 100/ML VIAL
  11. ALBUTEROL SULFATE. [Concomitant]
     Active Substance: ALBUTEROL SULFATE
  12. TRAZODONE HYDROCHLORIDE. [Concomitant]
     Active Substance: TRAZODONE HYDROCHLORIDE
     Dosage: TRAZODONE HCL 100 MG TABLET
  13. ERGOCALCIFEROL. [Concomitant]
     Active Substance: ERGOCALCIFEROL
     Dosage: ERGOCALCIFEROL 8000/ML DROPS
  14. ZOFRAN [Concomitant]
     Active Substance: ONDANSETRON HYDROCHLORIDE
     Dosage: ZOFRAN 4 MG TABLET
  15. LORAZEPAM. [Concomitant]
     Active Substance: LORAZEPAM
     Dosage: LORAZEPAM 0.5 MG TABLET
  16. DONEPEZIL HYDROCHLORIDE. [Concomitant]
     Active Substance: DONEPEZIL HYDROCHLORIDE
     Dosage: DONEPEZIL HCL 10 MG TABLET
  17. BACLOFEN. [Concomitant]
     Active Substance: BACLOFEN
     Dosage: BACLOFEN 10 MG TABLET
  18. LOVENOX [LEVOFLOXACIN] [Concomitant]
     Active Substance: LEVOFLOXACIN
     Dosage: LOVENOX 100 MG/ML SYRINGE
  19. CLONIDINE HYDROCHLORIDE. [Concomitant]
     Active Substance: CLONIDINE HYDROCHLORIDE
     Dosage: CLONIDINE HCL 0.1 MG TABLET
  20. BUDESONIDE. [Concomitant]
     Active Substance: BUDESONIDE
     Dosage: BUDESONIDE 0.25MG/2ML AMPUL?NEB
  21. MIDODRINE HYDROCHLORIDE. [Concomitant]
     Active Substance: MIDODRINE HYDROCHLORIDE
     Dosage: MIDODRINE HCL 10 MG TABLET
  22. NYSTATIN. [Concomitant]
     Active Substance: NYSTATIN
     Dosage: NYSTATIN 100000/G CREAM(GM)
  23. FLUCONAZOLE. [Concomitant]
     Active Substance: FLUCONAZOLE
     Dosage: FLUCONAZOLE 100 MG TABLET
  24. ABILIFY [Concomitant]
     Active Substance: ARIPIPRAZOLE
     Dosage: ABILIFY 10 MG TABLET
  25. ZETIA [Concomitant]
     Active Substance: EZETIMIBE
     Dosage: ZETIA 10 MG TABLET
  26. MULTIVITAMINS [VITAMINS NOS] [Concomitant]
     Active Substance: VITAMINS
     Dosage: MULTIVITAMINS WITH IRON TABLET
  27. BROVANA [Concomitant]
     Active Substance: ARFORMOTEROL TARTRATE
     Dosage: BROVANA 15MCG/2ML VIAL?NEB
  28. HYDROXYZINE HYDROCHLORIDE. [Concomitant]
     Active Substance: HYDROXYZINE HYDROCHLORIDE
     Dosage: HYDROXYZINE HCL 10 MG TABLET
  29. VANCOMYCIN HYDROCHLORIDE. [Concomitant]
     Active Substance: VANCOMYCIN HYDROCHLORIDE
     Dosage: VANCOMYCIN HCL 125 MG CAPSULE

REACTIONS (4)
  - Fall [Unknown]
  - Off label use [Unknown]
  - Spinal fusion surgery [Unknown]
  - Spinal fracture [Unknown]
